FAERS Safety Report 22247071 (Version 2)
Quarter: 2023Q2

REPORT INFORMATION
  Report Type: Report from Study
  Country: CO (occurrence: CO)
  Receive Date: 20230424
  Receipt Date: 20230426
  Transmission Date: 20230722
  Serious: Yes (Death, Hospitalization, Other)
  Sender: FDA-Public Use
  Company Number: CO-TAKEDA-2022TUS049175

PATIENT
  Age: 69 Year
  Sex: Female
  Weight: 58 kg

DRUGS (1)
  1. IXAZOMIB [Suspect]
     Active Substance: IXAZOMIB
     Indication: Plasma cell myeloma
     Dosage: 4 MILLIGRAM
     Route: 048
     Dates: start: 20211103

REACTIONS (18)
  - Plasma cell myeloma [Fatal]
  - Cholecystitis infective [Unknown]
  - Pain [Not Recovered/Not Resolved]
  - Dysphagia [Unknown]
  - Urinary tract infection [Unknown]
  - Pyrexia [Unknown]
  - Cardiac murmur [Unknown]
  - Fall [Not Recovered/Not Resolved]
  - Discouragement [Not Recovered/Not Resolved]
  - Nasal congestion [Not Recovered/Not Resolved]
  - Balance disorder [Not Recovered/Not Resolved]
  - Head injury [Not Recovered/Not Resolved]
  - Rhinorrhoea [Not Recovered/Not Resolved]
  - Pain in extremity [Not Recovered/Not Resolved]
  - Cough [Not Recovered/Not Resolved]
  - Decreased appetite [Not Recovered/Not Resolved]
  - Arthralgia [Not Recovered/Not Resolved]
  - Product use issue [Unknown]

NARRATIVE: CASE EVENT DATE: 20211103
